FAERS Safety Report 14788736 (Version 1)
Quarter: 2018Q2

REPORT INFORMATION
  Report Type: Report from Study
  Country: US (occurrence: US)
  Receive Date: 20180423
  Receipt Date: 20180423
  Transmission Date: 20180711
  Serious: Yes (Death, Hospitalization)
  Sender: FDA-Public Use
  Company Number: US-ROCHE-2106118

PATIENT
  Age: 53 Year
  Sex: Female
  Weight: 97 kg

DRUGS (3)
  1. BLINDED ATEZOLIZUMAB [Suspect]
     Active Substance: ATEZOLIZUMAB
     Indication: COLORECTAL CANCER METASTATIC
     Dosage: DATE OF LAST ADMINISTRATION: 07/FEB/2018
     Route: 042
     Dates: start: 20171222
  2. BEVACIZUMAB. [Suspect]
     Active Substance: BEVACIZUMAB
     Indication: COLORECTAL CANCER METASTATIC
     Dosage: DATE OF LAST ADMINISTRATION: 07/FEB/2018
     Route: 042
     Dates: start: 20171222
  3. CAPECITABINE. [Suspect]
     Active Substance: CAPECITABINE
     Indication: COLORECTAL CANCER METASTATIC
     Dosage: FOR 14 DAYS?DATE OF LAST ADMINISTRATION: 20/FEB/2018
     Route: 048
     Dates: start: 20171222

REACTIONS (6)
  - Gastrointestinal disorder [Fatal]
  - Abdominal pain [Unknown]
  - Vomiting [Unknown]
  - Nausea [Unknown]
  - Intestinal obstruction [Unknown]
  - Sepsis [Unknown]

NARRATIVE: CASE EVENT DATE: 20180224
